FAERS Safety Report 4833271-8 (Version None)
Quarter: 2005Q4

REPORT INFORMATION
  Report Type: 
  Country: None (occurrence: None)
  Receive Date: 20051117
  Receipt Date: 20051108
  Transmission Date: 20060501
  Serious: Yes (Hospitalization)
  Sender: FDA-Public Use
  Company Number: FRVA20050030

PATIENT
  Age: 64 Year
  Sex: Female

DRUGS (1)
  1. ALLEGRO            (FROVATRIPTAN) [Suspect]
     Indication: MIGRAINE
     Dosage: 2.5 MG ONCE PO
     Route: 048
     Dates: start: 20050901, end: 20050901

REACTIONS (4)
  - EPILEPSY [None]
  - FALL [None]
  - SYNCOPE [None]
  - TRAUMATIC HAEMATOMA [None]
